FAERS Safety Report 6803353-X (Version None)
Quarter: 2010Q2

REPORT INFORMATION
  Report Type: 
  Country: None (occurrence: None)
  Receive Date: 20100628
  Receipt Date: 20100625
  Transmission Date: 20101027
  Serious: Yes (Other)
  Sender: FDA-Public Use
  Company Number: DE-PFIZER INC-2010079308

PATIENT
  Sex: Female

DRUGS (1)
  1. SOMAVERT [Suspect]
     Dosage: UNK
     Dates: start: 20080101

REACTIONS (1)
  - VISUAL ACUITY REDUCED [None]
